FAERS Safety Report 7589358-2 (Version None)
Quarter: 2011Q2

REPORT INFORMATION
  Report Type: 
  Country: None (occurrence: None)
  Receive Date: 20110627
  Receipt Date: 20110616
  Transmission Date: 20111010
  Serious: Yes (Hospitalization)
  Sender: FDA-Public Use
  Company Number: JPI-P-015514

PATIENT
  Age: 69 Year
  Sex: Male

DRUGS (10)
  1. XYREM [Suspect]
     Indication: SLEEP APNOEA SYNDROME
     Dosage: 10 GM (5 GM, 2 IN 1 D), ORAL; 12 GM (6 GM, 2 IN 1 D), ORAL
     Route: 048
     Dates: start: 20020923
  2. XYREM [Suspect]
     Indication: CATAPLEXY
     Dosage: 10 GM (5 GM, 2 IN 1 D), ORAL; 12 GM (6 GM, 2 IN 1 D), ORAL
     Route: 048
     Dates: start: 20020923
  3. XYREM [Suspect]
     Indication: ARTHRITIS
     Dosage: 10 GM (5 GM, 2 IN 1 D), ORAL; 12 GM (6 GM, 2 IN 1 D), ORAL
     Route: 048
     Dates: start: 20020923
  4. XYREM [Suspect]
     Indication: FIBROMYALGIA
     Dosage: 10 GM (5 GM, 2 IN 1 D), ORAL; 12 GM (6 GM, 2 IN 1 D), ORAL
     Route: 048
     Dates: start: 20020923
  5. XYREM [Suspect]
     Indication: CARDIAC FAILURE CONGESTIVE
     Dosage: 10 GM (5 GM, 2 IN 1 D), ORAL; 12 GM (6 GM, 2 IN 1 D), ORAL
     Route: 048
     Dates: start: 20020923
  6. XYREM [Suspect]
     Indication: SLEEP APNOEA SYNDROME
     Dosage: 10 GM (5 GM, 2 IN 1 D), ORAL; 12 GM (6 GM, 2 IN 1 D), ORAL
     Route: 048
     Dates: start: 20030211
  7. XYREM [Suspect]
     Indication: CATAPLEXY
     Dosage: 10 GM (5 GM, 2 IN 1 D), ORAL; 12 GM (6 GM, 2 IN 1 D), ORAL
     Route: 048
     Dates: start: 20030211
  8. XYREM [Suspect]
     Indication: ARTHRITIS
     Dosage: 10 GM (5 GM, 2 IN 1 D), ORAL; 12 GM (6 GM, 2 IN 1 D), ORAL
     Route: 048
     Dates: start: 20030211
  9. XYREM [Suspect]
     Indication: FIBROMYALGIA
     Dosage: 10 GM (5 GM, 2 IN 1 D), ORAL; 12 GM (6 GM, 2 IN 1 D), ORAL
     Route: 048
     Dates: start: 20030211
  10. XYREM [Suspect]
     Indication: CARDIAC FAILURE CONGESTIVE
     Dosage: 10 GM (5 GM, 2 IN 1 D), ORAL; 12 GM (6 GM, 2 IN 1 D), ORAL
     Route: 048
     Dates: start: 20030211

REACTIONS (17)
  - ARTHROPATHY [None]
  - MUSCLE SPASMS [None]
  - LETHARGY [None]
  - ASTHENIA [None]
  - CATAPLEXY [None]
  - DECREASED ACTIVITY [None]
  - FLUID RETENTION [None]
  - LIMB INJURY [None]
  - BLOOD POTASSIUM DECREASED [None]
  - INSOMNIA [None]
  - CONTUSION [None]
  - WEIGHT FLUCTUATION [None]
  - DIZZINESS [None]
  - NARCOLEPSY [None]
  - THERAPEUTIC RESPONSE DECREASED [None]
  - FATIGUE [None]
  - BLOOD MAGNESIUM DECREASED [None]
